FAERS Safety Report 15327765 (Version 2)
Quarter: 2019Q3

REPORT INFORMATION
  Report Type: Spontaneous
  Country: US (occurrence: US)
  Receive Date: 20180828
  Receipt Date: 20190910
  Transmission Date: 20191004
  Serious: No
  Sender: FDA-Public Use
  Company Number: US-ROCHE-2141214

PATIENT
  Sex: Female
  Weight: 71 kg

DRUGS (7)
  1. PEGASYS [Suspect]
     Active Substance: PEGINTERFERON ALFA-2A
     Indication: EOSINOPHILIA
     Dosage: INJ 180MCG ML VIAL
     Route: 058
     Dates: start: 20160506
  2. LEVOCETIRIZIN [Concomitant]
     Active Substance: LEVOCETIRIZINE DIHYDROCHLORIDE
     Route: 065
  3. NITROFURANTIN [Concomitant]
     Active Substance: NITROFURANTOIN
     Route: 065
  4. METOPROLOL. [Concomitant]
     Active Substance: METOPROLOL
     Route: 065
  5. TOPIRAMATE. [Concomitant]
     Active Substance: TOPIRAMATE
     Route: 065
  6. PEGASYS [Suspect]
     Active Substance: PEGINTERFERON ALFA-2A
     Route: 058
  7. PEGASYS [Suspect]
     Active Substance: PEGINTERFERON ALFA-2A
     Indication: HYPEREOSINOPHILIC SYNDROME
     Route: 058
     Dates: start: 2006, end: 2013

REACTIONS (3)
  - Intentional product use issue [Unknown]
  - Seasonal allergy [Unknown]
  - Off label use [Unknown]
